FAERS Safety Report 12789378 (Version 1)
Quarter: 2016Q3

REPORT INFORMATION
  Report Type: Spontaneous
  Country: US (occurrence: US)
  Receive Date: 20160928
  Receipt Date: 20160928
  Transmission Date: 20161109
  Serious: No
  Sender: FDA-Public Use
  Company Number: US-ENDO PHARMACEUTICALS INC.-2015-004506

PATIENT
  Sex: Female
  Weight: 75.82 kg

DRUGS (3)
  1. PREDNISOLONE ORAL SOLUTION [Suspect]
     Active Substance: PREDNISOLONE
     Indication: MYALGIA
  2. PREDNISOLONE ORAL SOLUTION [Suspect]
     Active Substance: PREDNISOLONE
     Indication: POLYMYALGIA RHEUMATICA
     Route: 065
     Dates: start: 2015
  3. PREDNISOLONE ORAL SOLUTION [Suspect]
     Active Substance: PREDNISOLONE
     Indication: ARTHRALGIA

REACTIONS (1)
  - Weight increased [Unknown]

NARRATIVE: CASE EVENT DATE: 2015
